FAERS Safety Report 17970394 (Version 1)
Quarter: 2020Q3

REPORT INFORMATION
  Report Type: Spontaneous
  Country: US (occurrence: US)
  Receive Date: 20200701
  Receipt Date: 20200701
  Transmission Date: 20201103
  Serious: Yes (Other)
  Sender: FDA-Public Use
  Company Number: US-MYLANLABS-2020M1059533

PATIENT
  Sex: Male
  Weight: 93 kg

DRUGS (6)
  1. BABY ASPIRIN [Concomitant]
     Active Substance: ASPIRIN
     Dosage: UNK
  2. REPATHA [Concomitant]
     Active Substance: EVOLOCUMAB
     Dosage: UNK
  3. PHENYTEK [Suspect]
     Active Substance: PHENYTOIN SODIUM
     Dosage: 200 MILLIGRAM, AM,DAILY IN THE MORNING
     Route: 048
  4. PHENYTOIN. [Suspect]
     Active Substance: PHENYTOIN
     Indication: SEIZURE
     Dosage: 100 MILLIGRAM, PM, DAILY AT NIGHT
     Route: 048
  5. LEVOTHYROXINE. [Concomitant]
     Active Substance: LEVOTHYROXINE
     Dosage: UNK
  6. PHENYTEK [Suspect]
     Active Substance: PHENYTOIN SODIUM
     Indication: SEIZURE
     Dosage: 200 MILLIGRAM, BID
     Route: 048

REACTIONS (4)
  - Insomnia [Not Recovered/Not Resolved]
  - Drug ineffective [Not Recovered/Not Resolved]
  - Nocturia [Not Recovered/Not Resolved]
  - Anticonvulsant drug level abnormal [Not Recovered/Not Resolved]
